FAERS Safety Report 17742193 (Version 3)
Quarter: 2020Q2

REPORT INFORMATION
  Report Type: Spontaneous
  Country: DE (occurrence: DE)
  Receive Date: 20200504
  Receipt Date: 20200615
  Transmission Date: 20200714
  Serious: Yes (Other)
  Sender: FDA-Public Use
  Company Number: DE-ALLERGAN-2012616US

PATIENT
  Sex: Male

DRUGS (1)
  1. EFLORNITHINE HCL - BP [Suspect]
     Active Substance: EFLORNITHINE HYDROCHLORIDE
     Indication: HAIR DISORDER
     Dosage: UNK
     Route: 065
     Dates: start: 201909

REACTIONS (5)
  - Haemorrhage [Unknown]
  - Haematocrit decreased [Unknown]
  - Off label use [Unknown]
  - Haemoglobin decreased [Unknown]
  - Red blood cell count decreased [Unknown]
